FAERS Safety Report 8263867-5 (Version None)
Quarter: 2012Q2

REPORT INFORMATION
  Report Type: 
  Country: None (occurrence: None)
  Receive Date: 20120405
  Receipt Date: 20120330
  Transmission Date: 20120825
  Serious: Yes (Hospitalization)
  Sender: FDA-Public Use
  Company Number: US-GILEAD-2012-0053060

PATIENT
  Age: 43 Year
  Sex: Female

DRUGS (6)
  1. OXYGEN [Concomitant]
  2. REMODULIN [Concomitant]
     Dosage: UNK
  3. AMBRISENTAN [Suspect]
     Indication: PULMONARY ARTERIAL HYPERTENSION
     Dosage: 5 MG, QD
     Route: 048
     Dates: start: 20110607, end: 20110614
  4. TADALAFIL [Concomitant]
     Route: 048
  5. TRACLEER [Concomitant]
     Dosage: UNK
     Dates: end: 20110607
  6. AMBRISENTAN [Suspect]
     Dosage: 10 MG, QD
     Route: 048
     Dates: start: 20110614

REACTIONS (1)
  - COR PULMONALE [None]
